FAERS Safety Report 11219893 (Version 1)
Quarter: 2015Q2

REPORT INFORMATION
  Report Type: Spontaneous
  Country: IT (occurrence: None)
  Receive Date: 20150624
  Receipt Date: 20150624
  Transmission Date: 20150821
  Serious: Yes (Hospitalization, Other)
  Sender: FDA-Public Use
  Company Number: 2015HINLIT0507

PATIENT
  Age: 25 Year
  Sex: Male

DRUGS (4)
  1. ACYCLOVIR. [Suspect]
     Active Substance: ACYCLOVIR
     Indication: ANTIVIRAL PROPHYLAXIS
     Route: 048
  2. METHYLPREDNISOLONE (METHYLPREDNISOLONE) [Concomitant]
     Active Substance: METHYLPREDNISOLONE
  3. CHLORPHENAMINE MALEATE (CHLORPHENAMINE MALEATE) [Concomitant]
  4. ALEMTUZUMAB (ALEMTUZUMAB) [Concomitant]

REACTIONS (5)
  - Hypophosphataemia [None]
  - Fanconi syndrome acquired [None]
  - Glycosuria [None]
  - Hypouricaemia [None]
  - Albuminuria [None]
